FAERS Safety Report 9319079 (Version 2)
Quarter: 2013Q2

REPORT INFORMATION
  Report Type: Spontaneous
  Country: NL (occurrence: NL)
  Receive Date: 20130530
  Receipt Date: 20130610
  Transmission Date: 20140414
  Serious: Yes (Hospitalization)
  Sender: FDA-Public Use
  Company Number: NL-PFIZER INC-2013160170

PATIENT
  Age: 62 Year
  Sex: Female
  Weight: 70 kg

DRUGS (5)
  1. IBANDRONATE SODIUM [Suspect]
     Indication: OSTEOPOROSIS
     Dosage: 50 MG, 1X/DAY
     Dates: start: 20070522, end: 20100715
  2. IBANDRONATE SODIUM [Interacting]
     Dosage: 150 MG, MONTHLY
     Dates: start: 20100715, end: 20120712
  3. EXEMESTANE [Interacting]
     Indication: BREAST CANCER
     Dosage: UNK
     Dates: start: 20070712
  4. CALCICHEW-D3 [Concomitant]
     Dosage: UNK
     Dates: start: 20070712
  5. THYRAX [Concomitant]
     Indication: HYPOTHYROIDISM
     Dosage: 62.5 MG, 1X/DAY
     Dates: start: 20030101

REACTIONS (2)
  - Drug interaction [Recovered/Resolved with Sequelae]
  - Femur fracture [Recovered/Resolved with Sequelae]
